FAERS Safety Report 23746717 (Version 1)
Quarter: 2024Q2

REPORT INFORMATION
  Report Type: Report from Study
  Country: US (occurrence: US)
  Receive Date: 20240416
  Receipt Date: 20240416
  Transmission Date: 20240716
  Serious: Yes (Other)
  Sender: FDA-Public Use
  Company Number: US-UCBSA-2024018063

PATIENT
  Age: 52 Year
  Sex: Male
  Weight: 71.655 kg

DRUGS (1)
  1. CERTOLIZUMAB PEGOL [Suspect]
     Active Substance: CERTOLIZUMAB PEGOL
     Indication: Ankylosing spondylitis
     Dosage: 400 MILLIGRAM, EV 4 WEEKS (2 INJECTIONS EVERY 4 WEEKS, 400 MG (2 X200 MG/ML))
     Dates: start: 20230822

REACTIONS (5)
  - Weight decreased [Not Recovered/Not Resolved]
  - Lipids increased [Not Recovered/Not Resolved]
  - Blood glucose increased [Not Recovered/Not Resolved]
  - Thirst [Recovering/Resolving]
  - Pollakiuria [Recovering/Resolving]

NARRATIVE: CASE EVENT DATE: 20240101
